FAERS Safety Report 6810494-X (Version None)
Quarter: 2010Q2

REPORT INFORMATION
  Report Type: 
  Country: None (occurrence: None)
  Receive Date: 20100630
  Receipt Date: 20100623
  Transmission Date: 20101027
  Serious: Yes (Other)
  Sender: FDA-Public Use
  Company Number: FI-PFIZER INC-2010073227

PATIENT
  Age: 71 Year
  Sex: Female

DRUGS (8)
  1. SALAZOPYRIN [Suspect]
     Indication: RHEUMATOID ARTHRITIS
     Dosage: 4 TABLETS DAILY
     Route: 048
     Dates: start: 20100513, end: 20100601
  2. SALAZOPYRIN [Suspect]
     Dosage: 1 TABLET DAILY
     Route: 048
     Dates: start: 20100422, end: 20100428
  3. SALAZOPYRIN [Suspect]
     Dosage: 2 TABLETS DAILY
     Route: 048
     Dates: start: 20100429, end: 20100505
  4. SALAZOPYRIN [Suspect]
     Dosage: 3 TABLETS DAILY
     Route: 048
     Dates: start: 20100506, end: 20100512
  5. ARCOXIA [Concomitant]
     Indication: PAIN
  6. ARCOXIA [Concomitant]
     Indication: RHEUMATOID ARTHRITIS
  7. THYROXIN [Concomitant]
     Indication: HYPOTHYROIDISM
     Dosage: UNK
  8. SOMAC [Concomitant]
     Indication: PROPHYLAXIS AGAINST GASTROINTESTINAL ULCER

REACTIONS (2)
  - AGEUSIA [None]
  - ANOSMIA [None]
